FAERS Safety Report 9724827 (Version 6)
Quarter: 2014Q1

REPORT INFORMATION
  Report Type: Spontaneous
  Country: CA (occurrence: CA)
  Receive Date: 20131202
  Receipt Date: 20140326
  Transmission Date: 20141002
  Serious: Yes (Death, Hospitalization, Other)
  Sender: FDA-Public Use
  Company Number: CA-GILEAD-E2B_00001214

PATIENT
  Age: 62 Year
  Sex: Female
  Weight: 72.3 kg

DRUGS (13)
  1. AMBRISENTAN [Suspect]
     Indication: PULMONARY ARTERIAL HYPERTENSION
     Dosage: 5 MG, QD
     Route: 048
     Dates: start: 20110101
  2. REVATIO [Concomitant]
  3. WARFARIN [Concomitant]
  4. LASIX                              /00032601/ [Concomitant]
  5. ZAROXOLYN [Concomitant]
  6. JANUVIA [Concomitant]
  7. SPIRONOLACTONE [Concomitant]
  8. PANTOPRAZOLE [Concomitant]
  9. HYDROXYZINE [Concomitant]
  10. CLONAZEPAM [Concomitant]
  11. POTASSIUM [Concomitant]
  12. CALCIUM [Concomitant]
  13. TYLENOL WITH CODEINE NO.4 [Concomitant]

REACTIONS (15)
  - Death [Fatal]
  - Myocardial infarction [Not Recovered/Not Resolved]
  - Dialysis [Not Recovered/Not Resolved]
  - Gastrointestinal haemorrhage [Recovered/Resolved]
  - Cough [Recovered/Resolved]
  - Pyrexia [Recovered/Resolved]
  - Chills [Recovered/Resolved]
  - Influenza [Recovered/Resolved]
  - Haemoglobin decreased [Not Recovered/Not Resolved]
  - Fatigue [Recovered/Resolved]
  - Transfusion [Not Recovered/Not Resolved]
  - Pruritus [Recovered/Resolved]
  - Rash [Unknown]
  - Excoriation [Recovered/Resolved]
  - Dyspnoea [Unknown]
